FAERS Safety Report 4523625-1 (Version None)
Quarter: 2004Q4

REPORT INFORMATION
  Report Type: 
  Country: None (occurrence: None)
  Receive Date: 20041208
  Receipt Date: 20041122
  Transmission Date: 20050328
  Serious: Yes (Disabling)
  Sender: FDA-Public Use
  Company Number: 2004BL000210

PATIENT
  Age: 75 Year
  Sex: Female
  Weight: 85.2762 kg

DRUGS (8)
  1. NEOMYCIN AND POLYMXIN B SULFATES AND HYDROCORTISONE [Suspect]
     Indication: HEADACHE
     Dosage: 5 DROP ONCE A DAY RIGHT EAR
     Dates: start: 20031031, end: 20031031
  2. NEOMYCIN AND POLYMXIN B SULFATES AND HYDROCORTISONE [Suspect]
     Indication: NECK PAIN
     Dosage: 5 DROP ONCE A DAY RIGHT EAR
     Dates: start: 20031031, end: 20031031
  3. SYNTHROID [Concomitant]
  4. ^WATER PILL^ [Concomitant]
  5. POTASSIUM [Concomitant]
  6. DIOVANE [Concomitant]
  7. MECLIZINE [Concomitant]
  8. ASPIRIN [Concomitant]

REACTIONS (10)
  - DEAFNESS UNILATERAL [None]
  - DEPRESSION [None]
  - DISORIENTATION [None]
  - DRUG HYPERSENSITIVITY [None]
  - FEELING ABNORMAL [None]
  - HYPOAESTHESIA [None]
  - OTOTOXICITY [None]
  - THINKING ABNORMAL [None]
  - TINNITUS [None]
  - VESTIBULAR DISORDER [None]
